FAERS Safety Report 11795281 (Version 2)
Quarter: 2016Q1

REPORT INFORMATION
  Report Type: Spontaneous
  Country: CH (occurrence: SE)
  Receive Date: 20151202
  Receipt Date: 20160208
  Transmission Date: 20160525
  Serious: Yes (Hospitalization)
  Sender: FDA-Public Use
  Company Number: CH-LPDUSPRD-20150956

PATIENT
  Age: 35 Year
  Sex: Female

DRUGS (3)
  1. TUBERTEST [Concomitant]
     Active Substance: TUBERCULIN PURIFIED PROTEIN DERIVATIVE
     Dosage: DOSE NOT PROVIDED
     Route: 065
  2. VISCOTEARS [Concomitant]
     Active Substance: CARBOMER
     Dosage: AS REQUIRED
     Route: 065
  3. FERINJECT [Suspect]
     Active Substance: FERRIC CARBOXYMALTOSE
     Dosage: 100 MG, 1 IN 1 TOTAL
     Route: 041
     Dates: start: 20150123, end: 20150123

REACTIONS (6)
  - Diplopia [Recovered/Resolved]
  - Anxiety [Recovered/Resolved]
  - Pruritus [Recovered/Resolved]
  - Chills [Recovered/Resolved]
  - Erythema [Recovered/Resolved]
  - Fatigue [Recovered/Resolved]

NARRATIVE: CASE EVENT DATE: 20150123
